FAERS Safety Report 10199840 (Version 1)
Quarter: 2014Q2

REPORT INFORMATION
  Report Type: Other
  Country: CN (occurrence: CN)
  Receive Date: 20140527
  Receipt Date: 20140527
  Transmission Date: 20141212
  Serious: Yes (Hospitalization)
  Sender: FDA-Public Use
  Company Number: CN-DSJP-DSJ-2014-108713

PATIENT
  Sex: 0

DRUGS (1)
  1. OLMETEC [Suspect]
     Indication: HYPERTENSION
     Dosage: 20 MG, QD
     Route: 048
     Dates: start: 20130314, end: 20130813

REACTIONS (1)
  - Renal failure chronic [Recovering/Resolving]
